FAERS Safety Report 9431809 (Version 2)
Quarter: 2013Q3

REPORT INFORMATION
  Report Type: Spontaneous
  Country: US (occurrence: None)
  Receive Date: 20130726
  Receipt Date: 20130806
  Transmission Date: 20140515
  Serious: Yes (Hospitalization)
  Sender: FDA-Public Use
  Company Number: US-012327

PATIENT
  Age: 39 Year
  Sex: Female
  Weight: 61.24 kg

DRUGS (5)
  1. MENOPUR [Suspect]
     Indication: IN VITRO FERTILISATION
     Dosage: 75 IU QD (DOSING PER CYCLE INSTRUCTIONS (SECOND CYCLE) SUBCUTANEOUS)
     Dates: start: 20130701
  2. WELLBUTRIN [Concomitant]
  3. ZOLOFT [Concomitant]
  4. GONAL-F [Concomitant]
  5. CETROTIDE [Concomitant]

REACTIONS (10)
  - Hepatosplenomegaly [None]
  - Pyrexia [None]
  - Chills [None]
  - Rash [None]
  - Feeling abnormal [None]
  - Chest discomfort [None]
  - Dizziness [None]
  - Abdominal pain [None]
  - Procedural pain [None]
  - Hepatic enzyme increased [None]
